FAERS Safety Report 15241104 (Version 1)
Quarter: 2018Q3

REPORT INFORMATION
  Report Type: Spontaneous
  Country: US (occurrence: US)
  Receive Date: 20180711
  Receipt Date: 20180711
  Transmission Date: 20181010
  Serious: Yes (Other)
  Sender: FDA-Public Use
  Company Number: None

PATIENT
  Age: 32 Year
  Sex: Male
  Weight: 89.1 kg

DRUGS (1)
  1. VENLAFAXINE HCL XR [Suspect]
     Active Substance: VENLAFAXINE HYDROCHLORIDE
     Indication: ANXIETY
     Dosage: ?          QUANTITY:1 CAPSULE(S);?
     Route: 048
     Dates: start: 20180101, end: 20180610

REACTIONS (4)
  - Drug ineffective [None]
  - Anxiety [None]
  - Product substitution issue [None]
  - Mental disorder [None]

NARRATIVE: CASE EVENT DATE: 20180301
